FAERS Safety Report 14509667 (Version 1)
Quarter: 2018Q1

REPORT INFORMATION
  Report Type: Spontaneous
  Country: US (occurrence: US)
  Receive Date: 20180207
  Receipt Date: 20180207
  Transmission Date: 20180509
  Serious: Yes (Hospitalization)
  Sender: FDA-Public Use
  Company Number: None

PATIENT
  Age: 65 Year
  Sex: Male
  Weight: 99.34 kg

DRUGS (1)
  1. PROPRANOLOL [Suspect]
     Active Substance: PROPRANOLOL HYDROCHLORIDE
     Indication: TREMOR
     Dates: start: 20170712, end: 20171020

REACTIONS (4)
  - Dizziness [None]
  - Chest pain [None]
  - Therapy change [None]
  - Sinus bradycardia [None]

NARRATIVE: CASE EVENT DATE: 20171020
